FAERS Safety Report 4551860-5 (Version None)
Quarter: 2005Q1

REPORT INFORMATION
  Report Type: 
  Country: None (occurrence: None)
  Receive Date: 20050111
  Receipt Date: 20041229
  Transmission Date: 20050727
  Serious: Yes (Hospitalization)
  Sender: FDA-Public Use
  Company Number: 25921

PATIENT
  Age: 86 Year
  Sex: Female

DRUGS (6)
  1. FLECAINIDE ACETATE [Suspect]
     Dosage: ORAL
     Route: 048
  2. ACETAMINOPHEN [Suspect]
     Dosage: ORAL
     Route: 048
  3. RAMIPRIL [Suspect]
     Dosage: ORAL
     Route: 048
     Dates: end: 20040402
  4. AMLODIPINE BESYLATE [Suspect]
     Dosage: ORAL
     Route: 048
     Dates: end: 20040402
  5. VEINAMITOL (TROXERUTIN) [Suspect]
     Dosage: ORAL
     Route: 048
     Dates: end: 20040402
  6. KARDEGIC (ACETYLSALICYLATE LYSINE) [Suspect]
     Dosage: ORAL
     Route: 048
     Dates: end: 20040402

REACTIONS (4)
  - ABDOMINAL PAIN [None]
  - DIARRHOEA [None]
  - ENTEROCOLITIS HAEMORRHAGIC [None]
  - RECTAL HAEMORRHAGE [None]
